FAERS Safety Report 10100957 (Version 2)
Quarter: 2014Q2

REPORT INFORMATION
  Report Type: Report from Study
  Country: AU (occurrence: AU)
  Receive Date: 20140424
  Receipt Date: 20140424
  Transmission Date: 20141212
  Serious: Yes (Other)
  Sender: FDA-Public Use
  Company Number: AU-ACCORD-023266

PATIENT
  Age: 62 Year
  Sex: Female

DRUGS (3)
  1. GEMCITABINE/GEMCITABINE HYDROCHLORIDE [Suspect]
     Indication: NON-SMALL CELL LUNG CANCER METASTATIC
     Dosage: C3 D8 GEMCITABINE 1G/M2 ?D1,D8 Q21D (DOSE REDUCED TO 75 %); 18  DAYS
  2. CARBOPLATIN [Suspect]
     Indication: NON-SMALL CELL LUNG CANCER METASTATIC
     Dosage: CYCLE 3 ON DAY 8, AUC 5 AT DAY 1
  3. PREDNISOLONE [Suspect]
     Indication: NON-SMALL CELL LUNG CANCER METASTATIC

REACTIONS (1)
  - Pneumocystis jirovecii pneumonia [Recovering/Resolving]
